FAERS Safety Report 5596949-7 (Version None)
Quarter: 2007Q4

REPORT INFORMATION
  Report Type: 
  Country: None (occurrence: None)
  Receive Date: 20071220
  Receipt Date: 20070620
  Transmission Date: 20080405
  Serious: Yes (Other)
  Sender: FDA-Public Use
  Company Number: ENTC2007-0164

PATIENT
  Age: 86 Year
  Sex: Male

DRUGS (8)
  1. STALEVO 100 [Suspect]
     Indication: PARKINSON'S DISEASE
     Dosage: 150 MG SPLIT TAB 6X/D, ORAL
     Route: 048
     Dates: start: 20050621
  2. SINEMET [Suspect]
     Indication: PARKINSON'S DISEASE
     Dosage: 50/200 MG 6 TIMES DAILY, ORAL
     Route: 048
  3. SINEMET [Concomitant]
  4. SIMVASTATIN [Concomitant]
  5. SPIRONOLACTONE W/ HYDROCHLOROTHIAZIDE [Concomitant]
  6. SEROQUEL [Concomitant]
  7. REQUIP [Concomitant]
  8. JANUVIA [Concomitant]

REACTIONS (5)
  - CONDITION AGGRAVATED [None]
  - DRUG ADMINISTRATION ERROR [None]
  - DYSKINESIA [None]
  - HALLUCINATION [None]
  - WRONG TECHNIQUE IN DRUG USAGE PROCESS [None]
